FAERS Safety Report 5673442-4 (Version None)
Quarter: 2008Q1

REPORT INFORMATION
  Report Type: 
  Country: None (occurrence: None)
  Receive Date: 20080319
  Receipt Date: 20080307
  Transmission Date: 20080703
  Serious: Yes (Other)
  Sender: FDA-Public Use
  Company Number: JP-ROCHE-551242

PATIENT
  Age: 50 Year
  Sex: Male

DRUGS (1)
  1. TAMIFLU [Suspect]
     Indication: INFLUENZA
     Route: 048

REACTIONS (1)
  - VENOUS THROMBOSIS [None]
